FAERS Safety Report 4676602-4 (Version None)
Quarter: 2005Q2

REPORT INFORMATION
  Report Type: 
  Country: None (occurrence: None)
  Receive Date: 20050527
  Receipt Date: 20050428
  Transmission Date: 20051028
  Serious: Yes (Other)
  Sender: FDA-Public Use
  Company Number: LT-ROCHE-403089

PATIENT
  Age: 48 Year
  Sex: Male

DRUGS (6)
  1. CEFTRIAXONE SODIUM [Suspect]
     Route: 042
     Dates: start: 20050411, end: 20050411
  2. LEVOFLOXACIN [Suspect]
     Route: 065
     Dates: start: 20050411, end: 20050413
  3. FUROSEMIDE [Concomitant]
     Route: 042
     Dates: start: 20050411, end: 20050413
  4. DIGOXIN [Concomitant]
     Route: 042
     Dates: start: 20050411, end: 20050413
  5. NITROGLYCERIN [Concomitant]
     Route: 060
     Dates: start: 20050411, end: 20050413
  6. VERAPAMIL [Concomitant]
     Dates: start: 20050412, end: 20050413

REACTIONS (1)
  - MYOCARDIAL INFARCTION [None]
